FAERS Safety Report 4701937-6 (Version None)
Quarter: 2005Q2

REPORT INFORMATION
  Report Type: 
  Country: None (occurrence: None)
  Receive Date: 20050628
  Receipt Date: 20050223
  Transmission Date: 20051028
  Serious: Yes (Death)
  Sender: FDA-Public Use
  Company Number: US-MERCK-0502USA03491

PATIENT
  Age: 64 Year
  Sex: Male
  Weight: 114 kg

DRUGS (28)
  1. PREDNISONE [Concomitant]
     Indication: GOUT
     Route: 065
     Dates: start: 20020101, end: 20030217
  2. PREDNISONE [Concomitant]
     Indication: ARTHRITIS
     Route: 065
     Dates: start: 20010301, end: 20010801
  3. PREDNISONE [Concomitant]
     Route: 065
     Dates: start: 20010601, end: 20020101
  4. PREDNISONE [Concomitant]
     Route: 065
     Dates: start: 20020101, end: 20030217
  5. VIOXX [Suspect]
     Indication: GOUT
     Route: 048
     Dates: start: 20001019, end: 20010321
  6. VIOXX [Suspect]
     Route: 048
     Dates: start: 20001019, end: 20010321
  7. VIOXX [Suspect]
     Route: 048
     Dates: start: 20010402, end: 20030217
  8. VIOXX [Suspect]
     Route: 048
     Dates: start: 20010402, end: 20030217
  9. VIOXX [Suspect]
     Indication: RHEUMATOID ARTHRITIS
     Route: 048
     Dates: start: 20001019, end: 20010321
  10. VIOXX [Suspect]
     Route: 048
     Dates: start: 20001019, end: 20010321
  11. VIOXX [Suspect]
     Route: 048
     Dates: start: 20010402, end: 20030217
  12. VIOXX [Suspect]
     Route: 048
     Dates: start: 20010402, end: 20030217
  13. ALLOPURINOL [Concomitant]
     Indication: GOUT
     Route: 065
     Dates: start: 20010601, end: 20020101
  14. ALLOPURINOL [Concomitant]
     Route: 065
     Dates: start: 20020101, end: 20020301
  15. ALLOPURINOL [Concomitant]
     Route: 065
     Dates: start: 20020301, end: 20030217
  16. ALLOPURINOL [Concomitant]
     Indication: ARTHRITIS
     Route: 065
     Dates: start: 20010601, end: 20020101
  17. ALLOPURINOL [Concomitant]
     Route: 065
     Dates: start: 20020101, end: 20020301
  18. ALLOPURINOL [Concomitant]
     Route: 065
     Dates: start: 20020301, end: 20030217
  19. PREDNISONE [Concomitant]
     Route: 065
     Dates: start: 20010301, end: 20010801
  20. PREDNISONE [Concomitant]
     Route: 065
     Dates: start: 20010601, end: 20020101
  21. PERCOCET [Concomitant]
     Indication: GOUT
     Route: 065
     Dates: start: 20000101, end: 20030217
  22. PERCOCET [Concomitant]
     Indication: ARTHRITIS
     Route: 065
     Dates: start: 20000101, end: 20030217
  23. NAPROXEN [Concomitant]
     Indication: GOUT
     Route: 065
     Dates: start: 20000401, end: 20030217
  24. NAPROXEN [Concomitant]
     Indication: ARTHRITIS
     Route: 065
     Dates: start: 20000401, end: 20030217
  25. TYLENOL W/ CODEINE NO. 3 [Concomitant]
     Indication: GOUT
     Route: 065
     Dates: start: 20010601, end: 20030217
  26. TYLENOL W/ CODEINE NO. 3 [Concomitant]
     Indication: ARTHRITIS
     Route: 065
     Dates: start: 20010601, end: 20030217
  27. OXYCODONE HYDROCHLORIDE [Concomitant]
     Indication: GOUT
     Route: 065
     Dates: start: 20010601, end: 20030217
  28. OXYCODONE HYDROCHLORIDE [Concomitant]
     Indication: ARTHRALGIA
     Route: 065
     Dates: start: 20010601, end: 20030217

REACTIONS (13)
  - ALANINE AMINOTRANSFERASE INCREASED [None]
  - ASPARTATE AMINOTRANSFERASE INCREASED [None]
  - BLOOD ALKALINE PHOSPHATASE INCREASED [None]
  - BLOOD CHOLESTEROL INCREASED [None]
  - CORONARY ARTERY ATHEROSCLEROSIS [None]
  - CORONARY ARTERY THROMBOSIS [None]
  - DIVERTICULUM INTESTINAL [None]
  - GOUT [None]
  - HYPERTENSIVE HEART DISEASE [None]
  - MYOCARDIAL INFARCTION [None]
  - NODULE [None]
  - PRESCRIBED OVERDOSE [None]
  - SPINAL OSTEOARTHRITIS [None]
